APPROVED DRUG PRODUCT: CETIRIZINE HYDROCHLORIDE ALLERGY
Active Ingredient: CETIRIZINE HYDROCHLORIDE
Strength: 5MG
Dosage Form/Route: TABLET;ORAL
Application: A078427 | Product #003
Applicant: GLENMARK PHARMACEUTICALS INC USA
Approved: Dec 28, 2007 | RLD: No | RS: No | Type: OTC